FAERS Safety Report 11306482 (Version 1)
Quarter: 2015Q3

REPORT INFORMATION
  Report Type: Spontaneous
  Country: US (occurrence: US)
  Receive Date: 20150723
  Receipt Date: 20150723
  Transmission Date: 20151125
  Serious: No
  Sender: FDA-Public Use
  Company Number: US-TEVA-579987ACC

PATIENT
  Age: 33 Year
  Sex: Female
  Weight: 86.26 kg

DRUGS (3)
  1. PLAN B ONE-STEP [Suspect]
     Active Substance: LEVONORGESTREL
     Indication: POST COITAL CONTRACEPTION
     Dosage: 1.5 MILLIGRAM DAILY;
     Route: 048
     Dates: start: 20150706, end: 20150706
  2. LYRICA [Concomitant]
     Active Substance: PREGABALIN
     Indication: NERVE INJURY
  3. NORTRIPTYLINE [Concomitant]
     Active Substance: NORTRIPTYLINE
     Indication: NERVE INJURY

REACTIONS (3)
  - Nausea [Not Recovered/Not Resolved]
  - Abdominal pain lower [Recovered/Resolved]
  - Menstruation irregular [Recovered/Resolved]

NARRATIVE: CASE EVENT DATE: 20150710
